APPROVED DRUG PRODUCT: GALANTAMINE HYDROBROMIDE
Active Ingredient: GALANTAMINE HYDROBROMIDE
Strength: EQ 24MG BASE
Dosage Form/Route: CAPSULE, EXTENDED RELEASE;ORAL
Application: A078484 | Product #003
Applicant: IMPAX LABORATORIES INC
Approved: May 27, 2009 | RLD: No | RS: No | Type: DISCN